FAERS Safety Report 5193303-7 (Version None)
Quarter: 2006Q4

REPORT INFORMATION
  Report Type: 
  Country: None (occurrence: None)
  Receive Date: 20061228
  Receipt Date: 20060906
  Transmission Date: 20070319
  Serious: No
  Sender: FDA-Public Use
  Company Number: US-GLAXOSMITHKLINE-A0619250A

PATIENT
  Age: 57 Year
  Sex: Female

DRUGS (14)
  1. AVODART [Suspect]
     Dosage: .5MG PER DAY
     Route: 048
     Dates: start: 20060801
  2. NIASPAN [Concomitant]
  3. VICON FORTE [Concomitant]
  4. PERIACTIN [Concomitant]
  5. ONE A DAY [Concomitant]
  6. OMEGA 3 [Concomitant]
  7. NEXIUM [Concomitant]
  8. CITRACAL [Concomitant]
  9. ASCORBIC ACID [Concomitant]
  10. BIOTIN [Concomitant]
  11. SYNTHROID [Concomitant]
  12. ZETIA [Concomitant]
  13. EVISTA [Concomitant]
  14. CLARINEX [Concomitant]

REACTIONS (1)
  - VAGINAL BURNING SENSATION [None]
